FAERS Safety Report 23354346 (Version 1)
Quarter: 2024Q1

REPORT INFORMATION
  Report Type: Spontaneous
  Country: CN (occurrence: CN)
  Receive Date: 20240101
  Receipt Date: 20240101
  Transmission Date: 20240409
  Serious: Yes (Hospitalization)
  Sender: FDA-Public Use
  Company Number: CN-BoehringerIngelheim-2023-BI-279944

PATIENT
  Age: 85 Year
  Sex: Male
  Weight: 78 kg

DRUGS (2)
  1. ALTEPLASE [Suspect]
     Active Substance: ALTEPLASE
     Indication: Thrombolysis
     Dosage: FOR 1 MINUTE/ INFUSION
     Route: 042
     Dates: start: 20230918, end: 20230918
  2. ALTEPLASE [Suspect]
     Active Substance: ALTEPLASE
     Dosage: FOR 60 MINUTES/INFUSION
     Route: 042
     Dates: start: 20230918, end: 20230918

REACTIONS (4)
  - Hyperhidrosis [Recovering/Resolving]
  - Pallor [Recovering/Resolving]
  - Blood pressure decreased [Recovering/Resolving]
  - Off label use [Unknown]

NARRATIVE: CASE EVENT DATE: 20230918
